FAERS Safety Report 24205777 (Version 1)
Quarter: 2024Q3

REPORT INFORMATION
  Report Type: Spontaneous
  Country: NL (occurrence: NL)
  Receive Date: 20240813
  Receipt Date: 20240813
  Transmission Date: 20241017
  Serious: Yes (Hospitalization)
  Sender: TEVA
  Company Number: None

PATIENT
  Age: 61 Year
  Sex: Male
  Weight: 72 kg

DRUGS (2)
  1. COTRIMOXAZOLE [Suspect]
     Active Substance: SULFAMETHOXAZOLE\TRIMETHOPRIM
     Indication: Prostatitis
     Dosage: 2 X PER DAY 1 PIECE: 480 TABLET 80/400MG / BRAND NAME NOT SPECIFIED
     Route: 065
     Dates: start: 20240712, end: 20240719
  2. ROPINIROLE [Concomitant]
     Active Substance: ROPINIROLE
     Indication: Parkinson^s disease
     Dosage: 3 PIECES ONCE PER DAY:/ BRAND NAME NOT SPECIFIED
     Route: 065
     Dates: start: 20240516

REACTIONS (2)
  - Rash pruritic [Recovering/Resolving]
  - Tongue coated [Unknown]
